FAERS Safety Report 4407371-0 (Version None)
Quarter: 2004Q3

REPORT INFORMATION
  Report Type: 
  Country: None (occurrence: None)
  Receive Date: 20040721
  Receipt Date: 20040708
  Transmission Date: 20050211
  Serious: Yes (Death, Other)
  Sender: FDA-Public Use
  Company Number: 04-248-0977

PATIENT
  Age: 87 Year
  Sex: Female
  Weight: 53 kg

DRUGS (5)
  1. POLYMYXIN B SULFATE [Suspect]
     Indication: PNEUMONIA
     Dosage: SEE SECTION B-5
     Dates: start: 20040610, end: 20040621
  2. POLYMYXIN B SULFATE [Suspect]
     Indication: SEPSIS
     Dosage: SEE SECTION B-5
     Dates: start: 20040610, end: 20040621
  3. VANCO [Concomitant]
  4. IMPENIUM [Concomitant]
  5. NEURONTIN [Concomitant]

REACTIONS (3)
  - NEUTROPENIA [None]
  - PLATELET COUNT DECREASED [None]
  - SEPSIS [None]
